FAERS Safety Report 16453836 (Version 2)
Quarter: 2019Q3

REPORT INFORMATION
  Report Type: Report from Study
  Country: DE (occurrence: DE)
  Receive Date: 20190619
  Receipt Date: 20190827
  Transmission Date: 20191004
  Serious: Yes (Hospitalization)
  Sender: FDA-Public Use
  Company Number: PHHY2019DE138618

PATIENT
  Sex: Male
  Weight: 101 kg

DRUGS (4)
  1. FOLIC ACID. [Concomitant]
     Active Substance: FOLIC ACID
     Indication: PRODUCT USED FOR UNKNOWN INDICATION
     Dosage: 5 MG, UNK
     Route: 065
     Dates: start: 20171026
  2. IRBESARTAN. [Concomitant]
     Active Substance: IRBESARTAN
     Indication: PRODUCT USED FOR UNKNOWN INDICATION
     Dosage: 75 MG, UNK
     Route: 065
     Dates: start: 20090120
  3. METOPROLOL. [Concomitant]
     Active Substance: METOPROLOL
     Indication: PRODUCT USED FOR UNKNOWN INDICATION
     Dosage: 3 MG, UNK
     Route: 065
     Dates: start: 20190418
  4. COSENTYX [Suspect]
     Active Substance: SECUKINUMAB
     Indication: PSORIASIS
     Dosage: 150 MG, UNK (PRE-FILLED PEN)
     Route: 065
     Dates: start: 20171026

REACTIONS (23)
  - Dyspnoea [Recovered/Resolved]
  - Viral infection [Recovered/Resolved]
  - Eyelid oedema [Unknown]
  - Tachyarrhythmia [Unknown]
  - Eyelid ptosis [Unknown]
  - Skin laceration [Unknown]
  - Atrial fibrillation [Recovered/Resolved with Sequelae]
  - Echopraxia [Unknown]
  - Arrhythmia [Unknown]
  - Depression [Unknown]
  - Tachycardia [Recovered/Resolved with Sequelae]
  - Feeling abnormal [Unknown]
  - Eye oedema [Unknown]
  - Ventricular extrasystoles [Unknown]
  - Fall [Unknown]
  - Concomitant disease aggravated [Recovered/Resolved]
  - Bundle branch block right [Unknown]
  - Electrocardiogram repolarisation abnormality [Unknown]
  - Epistaxis [Unknown]
  - Hypokinesia [Unknown]
  - Supraventricular extrasystoles [Unknown]
  - Cognitive disorder [Recovered/Resolved with Sequelae]
  - Melaena [Unknown]

NARRATIVE: CASE EVENT DATE: 20190315
